FAERS Safety Report 20160696 (Version 1)
Quarter: 2021Q4

REPORT INFORMATION
  Report Type: Spontaneous
  Country: IL (occurrence: IL)
  Receive Date: 20211208
  Receipt Date: 20211208
  Transmission Date: 20220304
  Serious: Yes (Other)
  Sender: FDA-Public Use
  Company Number: IL-LUPIN PHARMACEUTICALS INC.-2021-23530

PATIENT
  Sex: Male
  Weight: 3.2 kg

DRUGS (1)
  1. NITROFURANTOIN [Suspect]
     Active Substance: NITROFURANTOIN
     Indication: Urinary tract infection
     Dosage: UNK, UNTIL THE END OF PREGNANCY
     Route: 064

REACTIONS (5)
  - Foetal exposure during pregnancy [Unknown]
  - Transient tachypnoea of the newborn [Unknown]
  - Hyperbilirubinaemia neonatal [Unknown]
  - Fever neonatal [Unknown]
  - Streptococcal infection [Unknown]
